FAERS Safety Report 21497343 (Version 2)
Quarter: 2022Q4

REPORT INFORMATION
  Report Type: Report from Study
  Country: CA (occurrence: CA)
  Receive Date: 20221023
  Receipt Date: 20221114
  Transmission Date: 20230113
  Serious: Yes (Hospitalization)
  Sender: FDA-Public Use
  Company Number: CA-JNJFOC-20221039787

PATIENT
  Age: 90 Year
  Sex: Male

DRUGS (1)
  1. APALUTAMIDE [Suspect]
     Active Substance: APALUTAMIDE
     Indication: Hormone-refractory prostate cancer
     Route: 048
     Dates: start: 20210618, end: 20221026

REACTIONS (2)
  - Volvulus [Unknown]
  - Dysphagia [Unknown]

NARRATIVE: CASE EVENT DATE: 20221001
